FAERS Safety Report 15929303 (Version 3)
Quarter: 2019Q3

REPORT INFORMATION
  Report Type: Report from Study
  Country: CA (occurrence: CA)
  Receive Date: 20190206
  Receipt Date: 20190703
  Transmission Date: 20191004
  Serious: Yes (Hospitalization, Other)
  Sender: FDA-Public Use
  Company Number: CA-ACTELION-A-US2019-185668

PATIENT
  Sex: Female

DRUGS (16)
  1. CARIPUL [Suspect]
     Active Substance: EPOPROSTENOL
     Dosage: 1.5 NG, UNK
     Route: 042
     Dates: start: 20190110
  2. RISEDRONATE [Concomitant]
     Active Substance: RISEDRONATE SODIUM
  3. SYNTHROID [Concomitant]
     Active Substance: LEVOTHYROXINE SODIUM
  4. CALCIUM [Concomitant]
     Active Substance: CALCIUM
  5. VITAMIN D [Concomitant]
     Active Substance: VITAMIN D NOS
  6. CARIPUL [Suspect]
     Active Substance: EPOPROSTENOL
     Dosage: 3000 NG/ML
     Route: 042
  7. LOSEC [Concomitant]
     Active Substance: OMEPRAZOLE
  8. PLAVIX [Concomitant]
     Active Substance: CLOPIDOGREL BISULFATE
  9. CARIPUL [Suspect]
     Active Substance: EPOPROSTENOL
     Indication: PULMONARY ARTERIAL HYPERTENSION
     Dosage: 3 NG
     Route: 042
     Dates: start: 20190110
  10. CELEBREX [Concomitant]
     Active Substance: CELECOXIB
  11. OPSUMIT [Suspect]
     Active Substance: MACITENTAN
     Indication: PULMONARY ARTERIAL HYPERTENSION
     Dosage: 10 MG
     Route: 048
  12. CRESTOR [Concomitant]
     Active Substance: ROSUVASTATIN CALCIUM
  13. LASIX [Concomitant]
     Active Substance: FUROSEMIDE
  14. ADCIRCA [Concomitant]
     Active Substance: TADALAFIL
  15. ASA [Concomitant]
     Active Substance: ASPIRIN
  16. OXYGEN. [Concomitant]
     Active Substance: OXYGEN
     Dosage: 1.5-2 L, PER MIN

REACTIONS (12)
  - Therapy non-responder [Not Recovered/Not Resolved]
  - Peripheral coldness [Not Recovered/Not Resolved]
  - Oxygen saturation decreased [Not Recovered/Not Resolved]
  - Transfusion [Not Recovered/Not Resolved]
  - Syncope [Not Recovered/Not Resolved]
  - Malaise [Not Recovered/Not Resolved]
  - Mineral supplementation [Not Recovered/Not Resolved]
  - Haemoglobin decreased [Not Recovered/Not Resolved]
  - Blood pressure decreased [Not Recovered/Not Resolved]
  - Feeling abnormal [Unknown]
  - Hospitalisation [Recovered/Resolved]
  - Haematochezia [Not Recovered/Not Resolved]
